FAERS Safety Report 7493955-2 (Version None)
Quarter: 2011Q2

REPORT INFORMATION
  Report Type: 
  Country: None (occurrence: None)
  Receive Date: 20110520
  Receipt Date: 20110511
  Transmission Date: 20111010
  Serious: Yes (Hospitalization)
  Sender: FDA-Public Use
  Company Number: BR-MEDIMMUNE-MEDI-0013192

PATIENT
  Sex: Female
  Weight: 6.13 kg

DRUGS (7)
  1. SINGULAIR BABY [Concomitant]
  2. ASCORBIC ACID [Concomitant]
  3. SYNAGIS [Suspect]
  4. PHENOBARBITAL TAB [Concomitant]
  5. VITAMIN D [Concomitant]
  6. SYNAGIS [Suspect]
     Indication: BRONCHOPULMONARY DYSPLASIA
     Route: 030
     Dates: start: 20100827
  7. VITAMIN A [Concomitant]

REACTIONS (1)
  - BRONCHOPNEUMONIA [None]
